FAERS Safety Report 7257234-0 (Version None)
Quarter: 2011Q1

REPORT INFORMATION
  Report Type: 
  Country: None (occurrence: None)
  Receive Date: 20110129
  Receipt Date: 20100817
  Transmission Date: 20110831
  Serious: Yes (Other)
  Sender: FDA-Public Use
  Company Number: US-ABBOTT-10P-163-0654117-00

PATIENT
  Sex: Male
  Weight: 86.26 kg

DRUGS (5)
  1. HUMIRA [Suspect]
     Indication: CROHN'S DISEASE
     Dates: start: 20100401, end: 20100701
  2. STEROIDS [Concomitant]
     Indication: CROHN'S DISEASE
  3. DARVOCET-N 100 [Concomitant]
     Indication: PAIN
     Dosage: N100, 1 EVERY 4-6 HOURS AS NEEDED
  4. NEXIUM [Concomitant]
     Indication: CROHN'S DISEASE
  5. BENADRYL [Concomitant]
     Indication: PRODUCT USED FOR UNKNOWN INDICATION

REACTIONS (11)
  - PYREXIA [None]
  - BACK PAIN [None]
  - RASH [None]
  - GENITAL RASH [None]
  - BRONCHITIS [None]
  - NAUSEA [None]
  - DIARRHOEA [None]
  - HEADACHE [None]
  - PAIN [None]
  - COUGH [None]
  - CONSTIPATION [None]
